FAERS Safety Report 4714515-X (Version None)
Quarter: 2005Q3

REPORT INFORMATION
  Report Type: 
  Country: None (occurrence: None)
  Receive Date: 20050705
  Receipt Date: 20050131
  Transmission Date: 20060218
  Serious: Yes (Other)
  Sender: FDA-Public Use
  Company Number: 2005-0007962

PATIENT
  Sex: Male

DRUGS (12)
  1. VIREAD [Suspect]
     Indication: HEPATITIS B VIRUS
     Dosage: 300 MG, ORAL
     Route: 048
     Dates: start: 20030303, end: 20050112
  2. VIREAD [Suspect]
     Indication: HIV INFECTION
     Dosage: 300 MG, ORAL
     Route: 048
     Dates: start: 20030303, end: 20050112
  3. EMTRIVA [Concomitant]
  4. REYATAZ [Concomitant]
  5. NORVIR [Concomitant]
  6. VIDEX EC [Concomitant]
  7. DIFLUCAN [Concomitant]
  8. BACTRIM DS [Concomitant]
  9. XANAX [Concomitant]
  10. AMBIEN [Concomitant]
  11. LEXAPRO [Concomitant]
  12. NEURONTIN [Concomitant]

REACTIONS (1)
  - RENAL FAILURE ACUTE [None]
